FAERS Safety Report 4787528-X (Version None)
Quarter: 2005Q4

REPORT INFORMATION
  Report Type: 
  Country: None (occurrence: None)
  Receive Date: 20051003
  Receipt Date: 20050922
  Transmission Date: 20060501
  Serious: Yes (Other)
  Sender: FDA-Public Use
  Company Number: 217983

PATIENT
  Age: 35 Year
  Sex: Male
  Weight: 71 kg

DRUGS (11)
  1. RITUXAN [Suspect]
     Indication: DIFFUSE LARGE B-CELL LYMPHOMA
     Dosage: 675 MG, INTRAVENOUS
     Route: 042
     Dates: start: 20041105, end: 20050307
  2. ADRIAMYCIN PFS [Suspect]
     Indication: DIFFUSE LARGE B-CELL LYMPHOMA
     Dosage: 87 MG, INTRAVENOUS
     Route: 042
     Dates: start: 20041116, end: 20050309
  3. ENDOXACIN(CYCLOPHOSPHAMIDE) [Suspect]
     Indication: DIFFUSE LARGE B-CELL LYMPHOMA
     Dosage: 1300 MG, INTRAVENOUS
     Route: 042
     Dates: start: 20041116, end: 20050309
  4. VINCRISTINE SULFATE [Suspect]
     Indication: DIFFUSE LARGE B-CELL LYMPHOMA
     Dosage: 2 MG, INTRAVENOUS
     Route: 042
     Dates: start: 20041116, end: 20050309
  5. PREDISOLONE [Suspect]
     Indication: DIFFUSE LARGE B-CELL LYMPHOMA
     Dosage: 100 MG, ORAL
     Route: 048
     Dates: start: 20041116, end: 20050309
  6. BETAMETHASONE [Concomitant]
  7. ACETAMINOPHEN [Concomitant]
  8. TEPRENONE (TEPRENONE) [Concomitant]
  9. SULFAMETHOXAZOLE [Concomitant]
  10. AMPHOTERICIN B [Concomitant]
  11. ALLOPURINOL [Concomitant]

REACTIONS (1)
  - NEUTROPHIL COUNT DECREASED [None]
